FAERS Safety Report 24737219 (Version 1)
Quarter: 2024Q4

REPORT INFORMATION
  Report Type: Spontaneous
  Country: US (occurrence: None)
  Receive Date: 20241212
  Receipt Date: 20241212
  Transmission Date: 20250115
  Serious: Yes (Other)
  Sender: Public
  Company Number: None

PATIENT
  Age: 47 Year
  Sex: Female

DRUGS (11)
  1. BENLYSTA [Suspect]
     Active Substance: BELIMUMAB
     Indication: Systemic lupus erythematosus
     Dosage: FREQUENCY : WEEKLY;?
     Route: 058
     Dates: start: 20230830
  2. AMLODIPINE [Concomitant]
     Active Substance: AMLODIPINE BESYLATE
  3. CLONAZEPAM TAB1MG [Concomitant]
  4. CYCLOSPORINE EMU 0.05% OP [Concomitant]
  5. DOXEPIN HCL CAP 100MG [Concomitant]
  6. DULOXETINE CAP 60MG [Concomitant]
  7. FLUTICASONE [Concomitant]
     Active Substance: FLUTICASONE
  8. GABAPENTIN TAB 800MG [Concomitant]
  9. GLARGIN YFGN INJ 1 00U/ML [Concomitant]
  10. HYDROXYCHLOROQUINE [Concomitant]
     Active Substance: HYDROXYCHLOROQUINE
  11. HYDROXYZ PAM CAP 50MG [Concomitant]

REACTIONS (4)
  - Drug ineffective [None]
  - Pain [None]
  - Neck surgery [None]
  - Therapy interrupted [None]

NARRATIVE: CASE EVENT DATE: 20241119
